FAERS Safety Report 8903286 (Version 1)
Quarter: 2012Q4

REPORT INFORMATION
  Report Type: 
  Country: MX (occurrence: MX)
  Receive Date: 20121113
  Receipt Date: 20121113
  Transmission Date: 20130627
  Serious: Yes (Other)
  Sender: FDA-Public Use
  Company Number: MX-PFIZER INC-2012281296

PATIENT
  Sex: Female

DRUGS (2)
  1. PRISTIQ [Suspect]
     Dosage: UNK
     Route: 048
  2. EFEXOR [Suspect]
     Dosage: UNK
     Route: 048
     Dates: start: 2011

REACTIONS (3)
  - Gastrointestinal haemorrhage [Unknown]
  - Wrong technique in drug usage process [Unknown]
  - Abdominal discomfort [Unknown]
